FAERS Safety Report 19267973 (Version 2)
Quarter: 2021Q2

REPORT INFORMATION
  Report Type: Spontaneous
  Country: US (occurrence: US)
  Receive Date: 20210517
  Receipt Date: 20210528
  Transmission Date: 20210717
  Serious: Yes (Death)
  Sender: FDA-Public Use
  Company Number: US-PFIZER INC-2020455311

PATIENT
  Age: 84 Year
  Sex: Male

DRUGS (1)
  1. RETACRIT [Suspect]
     Active Substance: EPOETIN ALFA-EPBX
     Indication: IMMUNE THROMBOCYTOPENIA
     Dosage: 40000 IU/ML, MONTHLY
     Route: 058

REACTIONS (2)
  - Death [Fatal]
  - Off label use [Unknown]
